FAERS Safety Report 19584845 (Version 1)
Quarter: 2021Q3

REPORT INFORMATION
  Report Type: Report from Study
  Country: GB (occurrence: GB)
  Receive Date: 20210720
  Receipt Date: 20210720
  Transmission Date: 20211014
  Serious: Yes (Hospitalization)
  Sender: FDA-Public Use
  Company Number: GB-MYLANLABS-2021M1043112

PATIENT
  Sex: Female

DRUGS (2)
  1. BRABIO 40 MG/ML SOLUTION FOR INJECTION, PRE?FILLED?SYRINGE [Suspect]
     Active Substance: GLATIRAMER ACETATE
     Indication: PRODUCT USED FOR UNKNOWN INDICATION
     Dosage: 40 MILLIGRAM, 3XW
     Route: 058
     Dates: start: 2019
  2. GABAPENTIN. [Concomitant]
     Active Substance: GABAPENTIN
     Dosage: UNK

REACTIONS (2)
  - Product dose omission issue [Unknown]
  - Abdominal pain upper [Unknown]
